FAERS Safety Report 6589153-7 (Version None)
Quarter: 2010Q1

REPORT INFORMATION
  Report Type: 
  Country: None (occurrence: None)
  Receive Date: 20100212
  Receipt Date: 20100129
  Transmission Date: 20100710
  Serious: Yes (Hospitalization)
  Sender: FDA-Public Use
  Company Number: ESP10000016

PATIENT
  Age: 73 Year
  Sex: Female

DRUGS (1)
  1. ACTONEL [Suspect]
     Indication: OSTEOPENIA
     Dosage: 35 MG, 1 /WEEK, ORAL
     Route: 048
     Dates: start: 20030101, end: 20091101

REACTIONS (4)
  - FEMUR FRACTURE [None]
  - FRACTURE DELAYED UNION [None]
  - PATHOLOGICAL FRACTURE [None]
  - PSEUDARTHROSIS [None]
